FAERS Safety Report 6593913-6 (Version None)
Quarter: 2010Q1

REPORT INFORMATION
  Report Type: 
  Country: None (occurrence: None)
  Receive Date: 20100222
  Receipt Date: 20100218
  Transmission Date: 20100710
  Serious: Yes (Death, Life-Threatening)
  Sender: FDA-Public Use
  Company Number: PHHO2010FR02799

PATIENT
  Sex: Female
  Weight: 87 kg

DRUGS (11)
  1. STI571/CGP57148B T35717+TAB [Suspect]
     Indication: ACUTE LYMPHOCYTIC LEUKAEMIA
     Dosage: 400 MG, UNK
     Route: 048
     Dates: start: 20090811, end: 20090822
  2. ARACYTINE [Suspect]
     Indication: ACUTE LYMPHOCYTIC LEUKAEMIA
     Dosage: 5700 MG, BID
     Route: 042
     Dates: start: 20090812
  3. METHOTREXATE [Suspect]
     Indication: ACUTE LYMPHOCYTIC LEUKAEMIA
     Dosage: 1900 MG, UNK
     Route: 042
     Dates: start: 20090811
  4. FUNGIZONE [Concomitant]
     Dosage: UNK
  5. ZELITREX [Concomitant]
  6. CEFTAZIDIME [Concomitant]
  7. COLIMYCINE [Concomitant]
  8. GENTAMICIN [Concomitant]
  9. METOCLOPRAMIDE [Concomitant]
  10. KYTRIL [Concomitant]
  11. DEROXAT [Concomitant]

REACTIONS (10)
  - BRONCHOPULMONARY ASPERGILLOSIS [None]
  - CEREBELLAR SYNDROME [None]
  - COMA [None]
  - DYSARTHRIA [None]
  - GENERAL PHYSICAL HEALTH DETERIORATION [None]
  - IMMUNOSUPPRESSION [None]
  - LUNG DISORDER [None]
  - MENINGITIS VIRAL [None]
  - PYREXIA [None]
  - RESPIRATORY DISTRESS [None]
